FAERS Safety Report 14008388 (Version 1)
Quarter: 2017Q3

REPORT INFORMATION
  Report Type: Spontaneous
  Country: US (occurrence: US)
  Receive Date: 20170925
  Receipt Date: 20170925
  Transmission Date: 20171128
  Serious: Yes (Life-Threatening, Hospitalization, Disabling)
  Sender: FDA-Public Use
  Company Number: None

PATIENT
  Age: 55 Year
  Sex: Female
  Weight: 205 kg

DRUGS (11)
  1. INVOKANA [Suspect]
     Active Substance: CANAGLIFLOZIN
     Indication: DIABETES MELLITUS INADEQUATE CONTROL
     Dosage: ?          QUANTITY:1 TABLET(S);?
     Route: 048
     Dates: start: 20150101, end: 20170918
  2. LANTUS [Concomitant]
     Active Substance: INSULIN GLARGINE
  3. LISINOPRIL. [Concomitant]
     Active Substance: LISINOPRIL
  4. METFORMIN [Concomitant]
     Active Substance: METFORMIN HYDROCHLORIDE
  5. DILTIAZEM. [Concomitant]
     Active Substance: DILTIAZEM
  6. CPAP [Concomitant]
     Active Substance: DEVICE
  7. VITAMIN D [Concomitant]
     Active Substance: CHOLECALCIFEROL
  8. COQ 10 [Concomitant]
     Active Substance: UBIDECARENONE
  9. NOVOLOG [Concomitant]
     Active Substance: INSULIN ASPART
  10. TACROLIMUS. [Concomitant]
     Active Substance: TACROLIMUS
  11. CELLCEPT [Concomitant]
     Active Substance: MYCOPHENOLATE MOFETIL\MYCOPHENOLATE MOFETIL HYDROCHLORIDE

REACTIONS (5)
  - Localised infection [None]
  - Loss of personal independence in daily activities [None]
  - Dyspnoea [None]
  - Chest pain [None]
  - Pulmonary embolism [None]

NARRATIVE: CASE EVENT DATE: 20170918
